FAERS Safety Report 18668506 (Version 1)
Quarter: 2020Q4

REPORT INFORMATION
  Report Type: Spontaneous
  Country: US (occurrence: US)
  Receive Date: 20201225
  Receipt Date: 20201225
  Transmission Date: 20210114
  Serious: No
  Sender: FDA-Public Use
  Company Number: None

PATIENT
  Age: 39 Year
  Sex: Female
  Weight: 69.75 kg

DRUGS (13)
  1. SYNTHROID [Concomitant]
     Active Substance: LEVOTHYROXINE SODIUM
  2. LIOTHYRONINE [Concomitant]
     Active Substance: LIOTHYRONINE
  3. EMGALITY [Suspect]
     Active Substance: GALCANEZUMAB-GNLM
     Indication: MIGRAINE PROPHYLAXIS
     Dosage: ?          QUANTITY:1 INJECTION(S);OTHER FREQUENCY:ONCE MONTHLY;?
     Route: 058
     Dates: start: 20200319, end: 20201208
  4. ALLEGRA [Concomitant]
     Active Substance: FEXOFENADINE HYDROCHLORIDE
  5. VITAMIN B2 / RIBOFLAVIN [Concomitant]
  6. TRAVACOR [Concomitant]
  7. VITAMIN D [Concomitant]
     Active Substance: VITAMIN D NOS
  8. MAGNESIUM OXIDE. [Concomitant]
     Active Substance: MAGNESIUM OXIDE
  9. JUNEL [Concomitant]
     Active Substance: ETHINYL ESTRADIOL\NORETHINDRONE ACETATE
  10. WOMENS MULTIVITAMIN [Concomitant]
  11. ELETRIPTAN. [Concomitant]
     Active Substance: ELETRIPTAN
  12. NAPROXEN. [Concomitant]
     Active Substance: NAPROXEN
  13. COENZYME Q10 [Concomitant]
     Active Substance: DIETARY SUPPLEMENT\UBIDECARENONE

REACTIONS (2)
  - Impaired healing [None]
  - Wound [None]

NARRATIVE: CASE EVENT DATE: 20200908
